FAERS Safety Report 14469620 (Version 1)
Quarter: 2018Q1

REPORT INFORMATION
  Report Type: Spontaneous
  Country: FR (occurrence: FR)
  Receive Date: 20180131
  Receipt Date: 20180131
  Transmission Date: 20180509
  Serious: Yes (Hospitalization)
  Sender: FDA-Public Use
  Company Number: FR-CONCORDIA PHARMACEUTICALS INC.-E2B_00009634

PATIENT
  Age: 91 Year
  Sex: Female

DRUGS (15)
  1. FUROSEMIDE. [Concomitant]
     Active Substance: FUROSEMIDE
  2. PREVISCAN (FLUINDIONE) [Concomitant]
     Active Substance: FLUINDIONE
  3. RABEPRAZOLE BASE [Concomitant]
     Active Substance: RABEPRAZOLE
  4. FLECTOR 1 POUR CENT, GEL [Concomitant]
  5. DIGOXIN. [Suspect]
     Active Substance: DIGOXIN
     Indication: ATRIAL FIBRILLATION
     Route: 048
     Dates: end: 20171220
  6. LERCANIDIPINE (CHLORHYDRATE DE) [Concomitant]
  7. METEOXANE [Concomitant]
     Active Substance: AMOBARBITAL\BELLADONNA LEAF\DIMETHICONE\ERGOTAMINE TARTRATE
  8. ACUPAN [Concomitant]
     Active Substance: NEFOPAM HYDROCHLORIDE
  9. DEXERYL, CR?ME EN TUBE [Concomitant]
  10. IRBESARTAN. [Concomitant]
     Active Substance: IRBESARTAN
  11. ECONAZOLE [Concomitant]
     Active Substance: ECONAZOLE
  12. BEDELIX [Concomitant]
  13. SERTRALINE (CHLORHYDRATE DE) [Concomitant]
     Active Substance: SERTRALINE HYDROCHLORIDE
  14. DAFALGAN [Concomitant]
     Active Substance: ACETAMINOPHEN
  15. VERATRAN [Concomitant]
     Active Substance: CLOTIAZEPAM

REACTIONS (4)
  - Disorientation [Recovered/Resolved]
  - Bradycardia [Recovered/Resolved]
  - Decreased appetite [Recovered/Resolved]
  - Electrocardiogram abnormal [Recovered/Resolved]

NARRATIVE: CASE EVENT DATE: 20171220
